FAERS Safety Report 9233372 (Version 1)
Quarter: 2013Q2

REPORT INFORMATION
  Report Type: Spontaneous
  Country: US (occurrence: US)
  Receive Date: 20130416
  Receipt Date: 20130416
  Transmission Date: 20140414
  Serious: Yes (Other)
  Sender: FDA-Public Use
  Company Number: US-PFIZER INC-2013116495

PATIENT
  Age: 76 Year
  Sex: Female
  Weight: 63.49 kg

DRUGS (4)
  1. LIPITOR [Suspect]
     Indication: BLOOD CHOLESTEROL INCREASED
     Dosage: 40 MG, ONCE A DAY
     Route: 048
  2. PROCARDIA XL [Suspect]
     Indication: ANGINA PECTORIS
     Dosage: 60 MG, ONCE A DAY
     Route: 048
  3. BABY ASPIRIN [Concomitant]
     Dosage: UNK, 1X/DAY
  4. FISH OIL [Concomitant]
     Dosage: 1000MG TWO TIMES A DAY

REACTIONS (1)
  - Diabetes mellitus [Unknown]
